FAERS Safety Report 8766665 (Version 1)
Quarter: 2012Q4

REPORT INFORMATION
  Report Type: 
  Country: US (occurrence: US)
  Receive Date: 20120903
  Receipt Date: 20120903
  Transmission Date: 20130627
  Serious: Yes (Hospitalization)
  Sender: FDA-Public Use
  Company Number: US-BAYER-2012-090713

PATIENT
  Age: 26 Year
  Sex: Female
  Weight: 74.83 kg

DRUGS (8)
  1. GIANVI [Suspect]
  2. YAZ [Suspect]
  3. LORTAB [Concomitant]
  4. NORCO [Concomitant]
     Dosage: 325-5 mg
  5. VICODIN [Concomitant]
     Dosage: 500-5 mg
  6. PHENERGAN [Concomitant]
     Dosage: 25 mg, UNK
  7. LEVAQUIN [Concomitant]
     Indication: URINARY TRACT INFECTION
  8. SPIRIVA [Concomitant]
     Dosage: 1 puff(s), daily.
     Route: 045

REACTIONS (1)
  - Pulmonary embolism [None]
